FAERS Safety Report 5925062-1 (Version None)
Quarter: 2008Q4

REPORT INFORMATION
  Report Type: 
  Country: None (occurrence: None)
  Receive Date: 20081021
  Receipt Date: 20081010
  Transmission Date: 20090506
  Serious: Yes (Death)
  Sender: FDA-Public Use
  Company Number: BR-JNJFOC-20081002617

PATIENT
  Age: 18 Year
  Sex: Female
  Weight: 65 kg

DRUGS (4)
  1. TOPAMAX [Suspect]
     Indication: MOOD DISORDER DUE TO A GENERAL MEDICAL CONDITION
  2. TOPAMAX [Suspect]
     Indication: MOOD ALTERED
     Dosage: 25 MG DAILY, WITH TITRATION (AT MOST 25 MG A DAY EVERY 2 WEEKS UP TO 200 MG) REACHED IN NOV-2007
  3. DEXAMETHASONE [Concomitant]
     Indication: MOOD ALTERED
  4. LEXAPRO [Concomitant]
     Indication: DRUG USE FOR UNKNOWN INDICATION

REACTIONS (8)
  - BRADYCARDIA [None]
  - BRAIN OEDEMA [None]
  - CARDIO-RESPIRATORY ARREST [None]
  - CONVULSION [None]
  - HYPOTHERMIA [None]
  - OFF LABEL USE [None]
  - SYNCOPE [None]
  - UNRESPONSIVE TO STIMULI [None]
